FAERS Safety Report 4332787-0 (Version None)
Quarter: 2004Q1

REPORT INFORMATION
  Report Type: 
  Country: None (occurrence: None)
  Receive Date: 20040330
  Receipt Date: 20040323
  Transmission Date: 20041129
  Serious: Yes (Hospitalization)
  Sender: FDA-Public Use
  Company Number: 2004-114100-NL

PATIENT

DRUGS (1)
  1. MIRTAZAPINE [Suspect]
     Dosage: DF

REACTIONS (1)
  - ANAPHYLACTIC REACTION [None]
